FAERS Safety Report 11197035 (Version 1)
Quarter: 2015Q2

REPORT INFORMATION
  Report Type: Spontaneous
  Country: US (occurrence: US)
  Receive Date: 20150617
  Receipt Date: 20150617
  Transmission Date: 20150821
  Serious: No
  Sender: FDA-Public Use
  Company Number: US-TAKEDA-2014MPI003185

PATIENT
  Sex: Female
  Weight: 61.22 kg

DRUGS (1)
  1. VELCADE [Suspect]
     Active Substance: BORTEZOMIB
     Indication: PLASMA CELL MYELOMA
     Dosage: ONCE WEEKLY FOR 4 WEEKS FOLLOWED BY 1 WEEK OFF
     Route: 058

REACTIONS (4)
  - Pain [Unknown]
  - Fatigue [Unknown]
  - Malaise [Unknown]
  - Influenza like illness [Unknown]
